FAERS Safety Report 7331440-9 (Version None)
Quarter: 2011Q1

REPORT INFORMATION
  Report Type: 
  Country: None (occurrence: None)
  Receive Date: 20110228
  Receipt Date: 20110228
  Transmission Date: 20110831
  Serious: Yes (Life-Threatening, Hospitalization, Disabling, Congenital Anomaly)
  Sender: FDA-Public Use
  Company Number: None

PATIENT
  Age: 66 Year
  Sex: Female
  Weight: 113.3993 kg

DRUGS (1)
  1. METFORMIN HCL [Suspect]
     Dosage: 1GM 2XD 2X DAILY
     Dates: start: 20040101, end: 20110101

REACTIONS (13)
  - ILL-DEFINED DISORDER [None]
  - ANORECTAL DISORDER [None]
  - DIARRHOEA [None]
  - GLAUCOMA [None]
  - BONE PAIN [None]
  - FAECAL INCONTINENCE [None]
  - DYSGEUSIA [None]
  - MYOCARDIAL INFARCTION [None]
  - ABDOMINAL PAIN UPPER [None]
  - PIGMENTATION DISORDER [None]
  - RECTAL HAEMORRHAGE [None]
  - HEART RATE IRREGULAR [None]
  - VOMITING [None]
